FAERS Safety Report 5149669-7 (Version None)
Quarter: 2006Q4

REPORT INFORMATION
  Report Type: 
  Country: None (occurrence: None)
  Receive Date: 20061113
  Receipt Date: 20060710
  Transmission Date: 20070319
  Serious: No
  Sender: FDA-Public Use
  Company Number: US-GLAXOSMITHKLINE-A0611633A

PATIENT
  Sex: Female

DRUGS (3)
  1. COREG [Suspect]
     Indication: HYPERTENSION
     Route: 048
  2. DIABETES MEDICATION [Concomitant]
  3. UNSPECIFIED MEDICATIONS [Concomitant]

REACTIONS (1)
  - BLOOD GLUCOSE INCREASED [None]
